FAERS Safety Report 16586593 (Version 1)
Quarter: 2019Q3

REPORT INFORMATION
  Report Type: Spontaneous
  Country: DE (occurrence: DE)
  Receive Date: 20190717
  Receipt Date: 20190717
  Transmission Date: 20191004
  Serious: Yes (Hospitalization)
  Sender: FDA-Public Use
  Company Number: DE-PFIZER INC-2019300178

PATIENT
  Age: 77 Year
  Sex: Male
  Weight: 82 kg

DRUGS (8)
  1. PIROXICAM. [Concomitant]
     Active Substance: PIROXICAM
     Dosage: UNK UNK, (UNITS REPORTED AS MG) AS NEEDED
     Route: 030
  2. DICLOFENAC [Suspect]
     Active Substance: DICLOFENAC
     Dosage: UNK UNK, (UNITS REPORTED AS MG) AS NEEDED
     Route: 030
  3. DEXAMETHASONE. [Suspect]
     Active Substance: DEXAMETHASONE
     Dosage: UNK UNK, (UNITS REPORETD AS MG) AS NEEDED
     Route: 030
  4. PREDNISOLONE. [Suspect]
     Active Substance: PREDNISOLONE
     Dosage: 5 MG, 1X/DAY (1-0-0-0)
  5. VOCADO [Concomitant]
     Active Substance: AMLODIPINE BESYLATE\OLMESARTAN MEDOXOMIL
     Dosage: UNK (UNITS REPORTED AS MG)
  6. NITROLINGUAL [Concomitant]
     Active Substance: NITROGLYCERIN
     Dosage: UNK UNK, (UNITS REPORTED AS MG) AS NEEDED
  7. IBUPROFEN. [Suspect]
     Active Substance: IBUPROFEN
     Dosage: 600 MG, UNK (1X2/DAILY)
  8. BETAMETHASONE. [Suspect]
     Active Substance: BETAMETHASONE
     Dosage: 100 MG, AS NEEDED
     Route: 030

REACTIONS (4)
  - Restlessness [Recovered/Resolved]
  - Hypertension [Recovered/Resolved]
  - Dizziness [Recovered/Resolved]
  - Palpitations [Recovered/Resolved]
